FAERS Safety Report 7595681-8 (Version None)
Quarter: 2011Q3

REPORT INFORMATION
  Report Type: 
  Country: None (occurrence: None)
  Receive Date: 20110707
  Receipt Date: 20110630
  Transmission Date: 20111222
  Serious: Yes (Hospitalization, Disabling, Other)
  Sender: FDA-Public Use
  Company Number: US-MERCK-1008USA00767

PATIENT
  Age: 66 Year
  Sex: Female
  Weight: 62 kg

DRUGS (3)
  1. FOSAMAX [Suspect]
     Route: 048
     Dates: start: 20021001
  2. FOSAMAX [Suspect]
     Route: 048
  3. FOSAMAX [Suspect]
     Indication: OSTEOPOROSIS
     Route: 048
     Dates: start: 20020101, end: 20080101

REACTIONS (49)
  - APPENDIX DISORDER [None]
  - OSTEOPOROSIS [None]
  - NORMOCHROMIC NORMOCYTIC ANAEMIA [None]
  - HYPOTHYROIDISM [None]
  - WEIGHT INCREASED [None]
  - BURSITIS [None]
  - CATARACT [None]
  - TREMOR [None]
  - VISUAL ACUITY REDUCED [None]
  - PARKINSONISM [None]
  - NAUSEA [None]
  - LIMB DISCOMFORT [None]
  - FEMUR FRACTURE [None]
  - HYPERGLYCAEMIA [None]
  - LOW TURNOVER OSTEOPATHY [None]
  - LIGAMENT SPRAIN [None]
  - MUSCLE STRAIN [None]
  - LANGERHANS' CELL HISTIOCYTOSIS [None]
  - ARTHRITIS [None]
  - DIVERTICULUM [None]
  - STRESS FRACTURE [None]
  - HYPERCOAGULATION [None]
  - GINGIVITIS [None]
  - DRUG HYPERSENSITIVITY [None]
  - PATELLOFEMORAL PAIN SYNDROME [None]
  - UPPER LIMB FRACTURE [None]
  - HYPERLIPIDAEMIA [None]
  - HYPOAESTHESIA [None]
  - GAIT DISTURBANCE [None]
  - MALIGNANT MELANOMA IN SITU [None]
  - ADVERSE DRUG REACTION [None]
  - JOINT RANGE OF MOTION DECREASED [None]
  - URTICARIA [None]
  - TEMPOROMANDIBULAR JOINT SYNDROME [None]
  - PARKINSON'S DISEASE [None]
  - FALL [None]
  - HUMERUS FRACTURE [None]
  - OSTEOARTHRITIS [None]
  - GINGIVAL BLEEDING [None]
  - TOOTH INJURY [None]
  - TOOTH DISORDER [None]
  - PSORIASIS [None]
  - BLOOD TRIGLYCERIDES INCREASED [None]
  - MIGRAINE [None]
  - FACTOR V LEIDEN MUTATION [None]
  - BRUXISM [None]
  - ROAD TRAFFIC ACCIDENT [None]
  - DYSLIPIDAEMIA [None]
  - DIASTOLIC DYSFUNCTION [None]
